FAERS Safety Report 13061006 (Version 2)
Quarter: 2016Q4

REPORT INFORMATION
  Report Type: Spontaneous
  Country: US (occurrence: US)
  Receive Date: 20161225
  Receipt Date: 20161229
  Transmission Date: 20170207
  Serious: Yes (Other)
  Sender: FDA-Public Use
  Company Number: US-AMGEN-USASP2016179901

PATIENT
  Age: 61 Year
  Sex: Female

DRUGS (2)
  1. PROLIA [Suspect]
     Active Substance: DENOSUMAB
     Indication: PRODUCT USED FOR UNKNOWN INDICATION
     Dosage: 60 MG, Q6MO
     Route: 058
     Dates: start: 201601
  2. DILANTIN [Concomitant]
     Active Substance: PHENYTOIN

REACTIONS (7)
  - Dental caries [Unknown]
  - Toothache [Recovering/Resolving]
  - Pain in jaw [Unknown]
  - Loose tooth [Unknown]
  - Gingivitis [Unknown]
  - Tooth disorder [Unknown]
  - Osteonecrosis of jaw [Unknown]

NARRATIVE: CASE EVENT DATE: 2016
